FAERS Safety Report 9774909 (Version 1)
Quarter: 2013Q4

REPORT INFORMATION
  Report Type: Spontaneous
  Country: US (occurrence: US)
  Receive Date: 20131220
  Receipt Date: 20131220
  Transmission Date: 20140711
  Serious: No
  Sender: FDA-Public Use
  Company Number: US-GLAXOSMITHKLINE-A1012676A

PATIENT
  Sex: Male

DRUGS (3)
  1. AVODART [Suspect]
     Indication: POLLAKIURIA
     Dosage: .5MG PER DAY
     Route: 048
     Dates: start: 2005, end: 201302
  2. PLAVIX [Concomitant]
  3. ACIPHEX [Concomitant]

REACTIONS (3)
  - Libido decreased [Not Recovered/Not Resolved]
  - Headache [Unknown]
  - Myalgia [Unknown]
